FAERS Safety Report 8005818-4 (Version None)
Quarter: 2011Q4

REPORT INFORMATION
  Report Type: 
  Country: None (occurrence: None)
  Receive Date: 20111223
  Receipt Date: 20111215
  Transmission Date: 20120403
  Serious: Yes (Hospitalization)
  Sender: FDA-Public Use
  Company Number: US-PFIZER INC-2011307434

PATIENT
  Age: 62 Year
  Sex: Male

DRUGS (1)
  1. CELEBREX [Suspect]
     Dosage: UNK
     Dates: start: 20020101, end: 20030101

REACTIONS (5)
  - HYPERHIDROSIS [None]
  - SYNCOPE [None]
  - ULCER HAEMORRHAGE [None]
  - DIARRHOEA [None]
  - DIZZINESS [None]
